FAERS Safety Report 24875641 (Version 1)
Quarter: 2025Q1

REPORT INFORMATION
  Report Type: Report from Study
  Country: US (occurrence: US)
  Receive Date: 20250122
  Receipt Date: 20250122
  Transmission Date: 20250409
  Serious: Yes (Other)
  Sender: GILEAD
  Company Number: US-GILEAD-2025-0700439

PATIENT
  Age: 42 Year

DRUGS (10)
  1. AZTREONAM LYSINE [Suspect]
     Active Substance: AZTREONAM LYSINE
     Indication: Cystic fibrosis
     Dosage: INHALE 75 MG VIA NEBULIZER INTO THE LUNGS 3 TIMES DAILY (AFTER MEALS) FOR 28 DAYS ON AND 28 DAYS OFF
     Route: 055
     Dates: start: 20240821
  2. BASAGLAR [Concomitant]
     Active Substance: INSULIN GLARGINE
  3. GABAPENTIN [Concomitant]
     Active Substance: GABAPENTIN
  4. KETOCONAZOLE [Concomitant]
     Active Substance: KETOCONAZOLE
  5. LEVOFLOXACIN [Concomitant]
     Active Substance: LEVOFLOXACIN
  6. OMEPRAZOLE [Concomitant]
     Active Substance: OMEPRAZOLE
  7. OZEMPIC [Concomitant]
     Active Substance: SEMAGLUTIDE
  8. PREGABALIN [Concomitant]
     Active Substance: PREGABALIN
  9. TRI-SPRINTEC [Concomitant]
     Active Substance: ETHINYL ESTRADIOL\NORGESTIMATE
  10. VALACYCLOVIR [Concomitant]
     Active Substance: VALACYCLOVIR HYDROCHLORIDE

REACTIONS (4)
  - Cystic fibrosis [Unknown]
  - Productive cough [Unknown]
  - Sleep disorder [Unknown]
  - Fatigue [Unknown]
